FAERS Safety Report 18384359 (Version 1)
Quarter: 2020Q4

REPORT INFORMATION
  Report Type: Spontaneous
  Country: US (occurrence: US)
  Receive Date: 20201014
  Receipt Date: 20201014
  Transmission Date: 20210114
  Serious: No
  Sender: FDA-Public Use
  Company Number: US-TEVA-2020-US-1837707

PATIENT
  Sex: Female

DRUGS (1)
  1. ESTRADIOL CREAM [Suspect]
     Active Substance: ESTRADIOL HEMIHYDRATE
     Indication: VULVOVAGINAL PAIN
     Route: 061
     Dates: start: 202009, end: 202010

REACTIONS (8)
  - Complication of device removal [Unknown]
  - Adnexa uteri pain [Unknown]
  - Device issue [Unknown]
  - Vaginal haemorrhage [Unknown]
  - Vulvovaginal burning sensation [Unknown]
  - Drug ineffective [Unknown]
  - Gastric disorder [Unknown]
  - Headache [Unknown]

NARRATIVE: CASE EVENT DATE: 202009
